FAERS Safety Report 5857130-7 (Version None)
Quarter: 2008Q3

REPORT INFORMATION
  Report Type: 
  Country: None (occurrence: None)
  Receive Date: 20080825
  Receipt Date: 20080812
  Transmission Date: 20090109
  Serious: Yes (Hospitalization)
  Sender: FDA-Public Use
  Company Number: US-ELI_LILLY_AND_COMPANY-US200808002609

PATIENT
  Age: 79 Year
  Sex: Male

DRUGS (4)
  1. CYMBALTA [Suspect]
     Dosage: 30 MG, UNK
     Dates: start: 20080620, end: 20080702
  2. LISINOPRIL [Concomitant]
     Dates: end: 20080702
  3. PHENERGAN HCL [Concomitant]
     Dates: end: 20080702
  4. DARVOCET [Concomitant]
     Dates: end: 20080702

REACTIONS (1)
  - HEPATITIS FULMINANT [None]
